FAERS Safety Report 17451727 (Version 2)
Quarter: 2020Q3

REPORT INFORMATION
  Report Type: Report from Study
  Country: US (occurrence: US)
  Receive Date: 20200224
  Receipt Date: 20200706
  Transmission Date: 20201102
  Serious: Yes (Other)
  Sender: FDA-Public Use
  Company Number: US-SA-2020SA041123

PATIENT

DRUGS (5)
  1. PROVIGIL [Concomitant]
     Active Substance: MODAFINIL
     Dosage: 200 MG
  2. DUPILUMAB [Suspect]
     Active Substance: DUPILUMAB
     Indication: DERMATITIS ATOPIC
  3. DUPILUMAB [Suspect]
     Active Substance: DUPILUMAB
     Indication: RHINITIS ALLERGIC
     Dosage: 300 MG, QOW
     Route: 058
     Dates: start: 20191101
  4. DUPILUMAB [Suspect]
     Active Substance: DUPILUMAB
     Indication: NASAL POLYPS
     Dosage: 300 MG, QOW
     Route: 058
     Dates: start: 20200103
  5. PROVIGIL [Concomitant]
     Active Substance: MODAFINIL
     Dosage: 100 MG

REACTIONS (5)
  - Rash [Unknown]
  - Blister [Recovering/Resolving]
  - Tardive dyskinesia [Recovering/Resolving]
  - Product use in unapproved indication [Unknown]
  - Tongue blistering [Recovering/Resolving]

NARRATIVE: CASE EVENT DATE: 2020
